FAERS Safety Report 4650751-9 (Version None)
Quarter: 2005Q2

REPORT INFORMATION
  Report Type: 
  Country: None (occurrence: None)
  Receive Date: 20050503
  Receipt Date: 20050422
  Transmission Date: 20051028
  Serious: Yes (Other)
  Sender: FDA-Public Use
  Company Number: PHBS2005US06164

PATIENT
  Age: 35 Year
  Sex: Female

DRUGS (12)
  1. CYCLOSPORINE [Suspect]
     Indication: PYODERMA GANGRENOSUM
     Dosage: 5 MG/KG/D
     Route: 048
     Dates: start: 19930301
  2. CYCLOSPORINE [Suspect]
     Dosage: 2 MG/KG/D
     Route: 048
     Dates: end: 19950201
  3. CYCLOSPORINE [Suspect]
     Route: 048
  4. CYCLOSPORINE [Suspect]
     Dosage: 175 MG/D
     Dates: start: 19990301
  5. CYCLOSPORINE [Suspect]
     Dosage: 150 MG/D
     Route: 048
     Dates: start: 19990101
  6. CYCLOSPORINE [Suspect]
     Dosage: 300 MG/D
     Route: 048
     Dates: start: 20000101
  7. PREDNISONE [Concomitant]
  8. LORATADINE [Concomitant]
     Dosage: 10 MG/D
     Route: 048
  9. DOXEPIN HCL [Concomitant]
     Dosage: 20 MG, QHS
     Route: 048
  10. CLOBETASOL [Concomitant]
     Route: 061
  11. MYCOPHENOLATE MOFETIL [Concomitant]
     Indication: PYODERMA GANGRENOSUM
     Dosage: 1 G, BID
     Dates: start: 19990101
  12. MYCOPHENOLATE MOFETIL [Concomitant]
     Dosage: 1.5 G, BID

REACTIONS (18)
  - ABORTION SPONTANEOUS [None]
  - ANTINEUTROPHIL CYTOPLASMIC ANTIBODY INCREASED [None]
  - ANTINEUTROPHIL CYTOPLASMIC ANTIBODY POSITIVE [None]
  - ANTINUCLEAR ANTIBODY POSITIVE [None]
  - CARDIOLIPIN ANTIBODY POSITIVE [None]
  - COOMBS POSITIVE HAEMOLYTIC ANAEMIA [None]
  - CUTANEOUS LUPUS ERYTHEMATOSUS [None]
  - DRUG EXPOSURE DURING PREGNANCY [None]
  - DYSPNOEA [None]
  - GLOMERULOSCLEROSIS [None]
  - HAEMATURIA [None]
  - HYPERTENSION [None]
  - LUPUS NEPHRITIS [None]
  - PNEUMONITIS [None]
  - PROTEINURIA [None]
  - RASH [None]
  - RASH SCALY [None]
  - RHEUMATOID FACTOR INCREASED [None]
